FAERS Safety Report 18291629 (Version 2)
Quarter: 2021Q1

REPORT INFORMATION
  Report Type: Spontaneous
  Country: GB (occurrence: GB)
  Receive Date: 20200921
  Receipt Date: 20210330
  Transmission Date: 20210419
  Serious: Yes (Death, Hospitalization)
  Sender: FDA-Public Use
  Company Number: GB-ASTRAZENECA-2020SF17632

PATIENT
  Age: 72 Year
  Sex: Female

DRUGS (6)
  1. PEMBROLIZUMAB. [Interacting]
     Active Substance: PEMBROLIZUMAB
     Indication: NON-SMALL CELL LUNG CANCER STAGE IV
     Dosage: 2 CYCLES WITH CARBOPLATIN AND PEMETREXED
     Route: 065
     Dates: start: 20190207, end: 20190226
  2. CARBOPLATIN. [Concomitant]
     Active Substance: CARBOPLATIN
     Indication: NON-SMALL CELL LUNG CANCER STAGE IV
     Dosage: 2 CYCLES WITH PEMETREXED AND PEMROLIZUMAB
     Route: 065
  3. PEMETREXED. [Concomitant]
     Active Substance: PEMETREXED
     Indication: NON-SMALL CELL LUNG CANCER STAGE IV
     Dosage: 2 CYCLES WITH CARBOPLATIN AND PEMROLIZUMAB
     Route: 065
  4. CARBOPLATIN. [Concomitant]
     Active Substance: CARBOPLATIN
     Indication: NON-SMALL CELL LUNG CANCER STAGE IV
     Dosage: 2 CYCLES WITH PEMETREXED
     Route: 065
  5. PEMETREXED. [Concomitant]
     Active Substance: PEMETREXED
     Indication: NON-SMALL CELL LUNG CANCER STAGE IV
     Dosage: 2 CYCLES WITH CARBOPLATIN
     Route: 065
  6. OSIMERTINIB. [Suspect]
     Active Substance: OSIMERTINIB
     Indication: NON-SMALL CELL LUNG CANCER STAGE IV
     Route: 048
     Dates: start: 20190319, end: 20190412

REACTIONS (8)
  - Immune-mediated pneumonitis [Fatal]
  - Toxic epidermal necrolysis [Fatal]
  - Drug interaction [Fatal]
  - Myalgia [Unknown]
  - Diarrhoea [Unknown]
  - Malaise [Unknown]
  - Pyrexia [Unknown]
  - Stomatitis [Unknown]

NARRATIVE: CASE EVENT DATE: 20190403
